FAERS Safety Report 9674289 (Version 3)
Quarter: 2013Q4

REPORT INFORMATION
  Report Type: Spontaneous
  Country: US (occurrence: US)
  Receive Date: 20131107
  Receipt Date: 20131121
  Transmission Date: 20140711
  Serious: No
  Sender: FDA-Public Use
  Company Number: US-009507513-1311USA002319

PATIENT
  Age: 55 Year
  Sex: Female

DRUGS (4)
  1. DULERA [Suspect]
     Indication: ASTHMA
     Dosage: 200/5MCG TAKEN 1 PUFF TWICE DAILY
     Route: 055
     Dates: start: 20131029, end: 20131103
  2. FLONASE [Concomitant]
  3. METOPROLOL [Concomitant]
  4. BENADRYL [Concomitant]

REACTIONS (2)
  - Heart rate increased [Not Recovered/Not Resolved]
  - Underdose [Unknown]
